FAERS Safety Report 25580947 (Version 1)
Quarter: 2025Q3

REPORT INFORMATION
  Report Type: Spontaneous
  Country: US (occurrence: US)
  Receive Date: 20250718
  Receipt Date: 20250718
  Transmission Date: 20251021
  Serious: No
  Sender: NOVO NORDISK
  Company Number: US-NOVOPROD-1438674

PATIENT
  Age: 35 Year
  Sex: Male
  Weight: 410 kg

DRUGS (1)
  1. WEGOVY [Suspect]
     Active Substance: SEMAGLUTIDE
     Indication: Type 2 diabetes mellitus

REACTIONS (3)
  - Adverse drug reaction [Unknown]
  - Drug ineffective [Unknown]
  - Product use in unapproved indication [Unknown]
